FAERS Safety Report 20704334 (Version 1)
Quarter: 2022Q2

REPORT INFORMATION
  Report Type: Other
  Country: BT (occurrence: BT)
  Receive Date: 20220413
  Receipt Date: 20220413
  Transmission Date: 20220721
  Serious: Yes (Hospitalization)
  Sender: FDA-Public Use
  Company Number: BT-DEXPHARM-20220480

PATIENT
  Age: 26 Year
  Sex: Female
  Weight: 44 kg

DRUGS (7)
  1. OMEPRAZOLE [Interacting]
     Active Substance: OMEPRAZOLE
     Dosage: 20 MG BID
     Route: 050
     Dates: start: 20201107, end: 20201110
  2. TACROLIMUS [Interacting]
     Active Substance: TACROLIMUS
     Dosage: 2.5 MG BID. DOSE ADMINISTERED ACCORDING TO TROUGH CO LEVEL
     Route: 050
     Dates: start: 20201107
  3. LEFLUNOMIDE [Concomitant]
     Active Substance: LEFLUNOMIDE
     Dosage: 20 MG OD
     Route: 050
     Dates: start: 2013
  4. PREDNISOLONE [Concomitant]
     Active Substance: PREDNISOLONE
     Dosage: DOSE INCREASED FROM 5 MG OD TO 50 MG OD ON ADMISSION
     Route: 050
     Dates: start: 20201107
  5. NIFEDIPINE [Concomitant]
     Active Substance: NIFEDIPINE
     Dosage: 40 MG BID
     Route: 050
     Dates: start: 2013
  6. HYDRALAZINE [Concomitant]
     Active Substance: HYDRALAZINE HYDROCHLORIDE
     Dosage: 50 MG TID
     Route: 050
     Dates: start: 2013
  7. FLUCONAZOLE [Interacting]
     Active Substance: FLUCONAZOLE
     Indication: Fungal infection
     Dosage: 150 MG OD
     Route: 050

REACTIONS (3)
  - Galactorrhoea [Recovered/Resolved]
  - Drug interaction [Recovered/Resolved]
  - Drug level increased [Recovered/Resolved]

NARRATIVE: CASE EVENT DATE: 20201110
